FAERS Safety Report 7338242-8 (Version None)
Quarter: 2011Q1

REPORT INFORMATION
  Report Type: 
  Country: None (occurrence: None)
  Receive Date: 20110308
  Receipt Date: 20110303
  Transmission Date: 20110831
  Serious: Yes (Death, Other)
  Sender: FDA-Public Use
  Company Number: GXKR2010JP07057

PATIENT
  Sex: Female
  Weight: 38 kg

DRUGS (7)
  1. ISONIAZID [Concomitant]
     Indication: PULMONARY TUBERCULOSIS
     Dosage: 300 MG, UNK
     Route: 048
     Dates: start: 20100521
  2. FRANDOL [Concomitant]
     Dosage: 40 MG, UNK
  3. RIFAMPICIN [Suspect]
     Indication: PULMONARY TUBERCULOSIS
     Dosage: 300 MG, UNK
     Route: 048
     Dates: start: 20100521
  4. ALFAROL [Concomitant]
     Dosage: 0.5 UG, UNK
     Route: 048
  5. EBUTOL [Concomitant]
     Indication: PULMONARY TUBERCULOSIS
     Dosage: 500 MG, UNK
     Route: 048
     Dates: start: 20100521
  6. PYDOXAL [Concomitant]
     Dosage: 30 MG, UNK
     Route: 048
     Dates: start: 20100521
  7. RENIVACE [Concomitant]
     Dosage: 5 MG, UNK
     Route: 048

REACTIONS (2)
  - HYPONATRAEMIA [None]
  - INAPPROPRIATE ANTIDIURETIC HORMONE SECRETION [None]
